FAERS Safety Report 9198056 (Version 1)
Quarter: 2013Q1

REPORT INFORMATION
  Report Type: Spontaneous
  Country: BR (occurrence: BR)
  Receive Date: 20130328
  Receipt Date: 20130328
  Transmission Date: 20140127
  Serious: Yes (Hospitalization)
  Sender: FDA-Public Use
  Company Number: BR-BAYER-2013-038312

PATIENT
  Age: 31 Year
  Sex: Female
  Weight: 68 kg

DRUGS (3)
  1. DIANE [Suspect]
     Indication: SEBORRHOEA
     Dosage: UNK
     Route: 048
     Dates: start: 20130308, end: 20130321
  2. AZELAN [Suspect]
     Indication: SKIN DISORDER
     Dosage: UNK
     Route: 061
     Dates: start: 20130324
  3. AZELAN [Suspect]
     Indication: ACNE

REACTIONS (6)
  - Abdominal pain [Not Recovered/Not Resolved]
  - Nausea [Not Recovered/Not Resolved]
  - Cholelithiasis [None]
  - Off label use [None]
  - Drug administration error [None]
  - Erythema [Not Recovered/Not Resolved]
